FAERS Safety Report 8310577-1 (Version None)
Quarter: 2012Q2

REPORT INFORMATION
  Report Type: 
  Country: None (occurrence: None)
  Receive Date: 20120425
  Receipt Date: 20120411
  Transmission Date: 20120825
  Serious: Yes (Other)
  Sender: FDA-Public Use
  Company Number: CH-ROCHE-1059053

PATIENT
  Age: 66 Year
  Sex: Male

DRUGS (9)
  1. ZELBORAF [Suspect]
     Indication: MALIGNANT MELANOMA
     Dosage: DRUG WITHDRAWN/INTERRUPTED
     Route: 048
     Dates: start: 20120124, end: 20120219
  2. REMERON [Concomitant]
     Indication: INSOMNIA
     Dates: start: 20120102, end: 20120103
  3. TRANSIPEG (SWITZERLAND) [Concomitant]
     Dosage: POWDERS
     Route: 065
     Dates: start: 20111230
  4. VALPROATE SODIUM [Suspect]
     Indication: CONVULSION
     Dosage: DOSE REDUCED
     Route: 048
     Dates: start: 20111223
  5. DEXAMETHASONE [Concomitant]
     Indication: INTRACRANIAL PRESSURE INCREASED
     Dosage: DEXAMETHASON GALEPHARM
     Route: 048
     Dates: start: 20111223, end: 20120123
  6. DEXAMETHASONE [Concomitant]
     Dates: start: 20120124, end: 20120226
  7. DEXAMETHASONE [Concomitant]
     Dates: start: 20120227
  8. REMERON [Concomitant]
     Indication: ANXIETY
     Route: 048
     Dates: start: 20111229, end: 20120102
  9. ZOLPIDEM [Concomitant]
     Route: 048
     Dates: start: 20120106

REACTIONS (1)
  - CHOLESTATIC LIVER INJURY [None]
